FAERS Safety Report 12873960 (Version 1)
Quarter: 2016Q4

REPORT INFORMATION
  Report Type: Spontaneous
  Country: US (occurrence: US)
  Receive Date: 20161021
  Receipt Date: 20161021
  Transmission Date: 20170207
  Serious: No
  Sender: FDA-Public Use
  Company Number: US-GLAXOSMITHKLINE-US2016154249

PATIENT
  Age: 56 Year
  Sex: Female

DRUGS (8)
  1. BENLYSTA [Suspect]
     Active Substance: BELIMUMAB
     Indication: SYSTEMIC LUPUS ERYTHEMATOSUS
     Dosage: UNK
     Route: 042
     Dates: start: 201511
  2. DIOVAN [Concomitant]
     Active Substance: VALSARTAN
  3. PLAVIX [Concomitant]
     Active Substance: CLOPIDOGREL BISULFATE
  4. MYCOPHENOLATE [Concomitant]
     Active Substance: MYCOPHENOLIC ACID
  5. PRAVASTATIN. [Concomitant]
     Active Substance: PRAVASTATIN
     Dosage: UNK
  6. METOPROLOL. [Concomitant]
     Active Substance: METOPROLOL
  7. BUPROPION. [Concomitant]
     Active Substance: BUPROPION
  8. ACIPHEX [Concomitant]
     Active Substance: RABEPRAZOLE SODIUM

REACTIONS (10)
  - Oropharyngeal pain [Unknown]
  - Asthenia [Not Recovered/Not Resolved]
  - Headache [Recovered/Resolved]
  - Drug dose omission [Unknown]
  - Influenza [Recovered/Resolved]
  - Drug ineffective [Unknown]
  - Nausea [Recovered/Resolved]
  - Alopecia [Recovered/Resolved]
  - Unevaluable event [Unknown]
  - Malaise [Unknown]

NARRATIVE: CASE EVENT DATE: 20160311
